FAERS Safety Report 17016822 (Version 1)
Quarter: 2019Q4

REPORT INFORMATION
  Report Type: Spontaneous
  Country: US (occurrence: US)
  Receive Date: 20191110
  Receipt Date: 20191110
  Transmission Date: 20200122
  Serious: Yes (Disabling)
  Sender: FDA-Public Use
  Company Number: None

PATIENT
  Age: 8 Year
  Sex: Male
  Weight: 32.85 kg

DRUGS (1)
  1. MIRALAX [Suspect]
     Active Substance: POLYETHYLENE GLYCOL 3350
     Indication: CONSTIPATION
     Route: 048
     Dates: start: 20191024, end: 20191024

REACTIONS (10)
  - Cystitis [None]
  - Anxiety [None]
  - Pain [None]
  - Headache [None]
  - Panic attack [None]
  - Fear of eating [None]
  - Fear of death [None]
  - Bladder pain [None]
  - Phobia [None]
  - Renal pain [None]

NARRATIVE: CASE EVENT DATE: 20191025
